FAERS Safety Report 11507270 (Version 1)
Quarter: 2015Q3

REPORT INFORMATION
  Report Type: Spontaneous
  Country: CA (occurrence: CA)
  Receive Date: 20150915
  Receipt Date: 20150915
  Transmission Date: 20151125
  Serious: Yes (Other)
  Sender: FDA-Public Use
  Company Number: CA-AKORN PHARMACEUTICALS-2015AKN00491

PATIENT
  Age: 53 Year
  Sex: Female

DRUGS (4)
  1. RITONAVIR. [Suspect]
     Active Substance: RITONAVIR
     Indication: HIV INFECTION
  2. RALTEGRAVIR. [Concomitant]
     Active Substance: RALTEGRAVIR
     Indication: HIV INFECTION
  3. TRIAMCINOLONE ACETONIDE. [Suspect]
     Active Substance: TRIAMCINOLONE ACETONIDE
     Route: 014
  4. RITONAVIR-BOOSTED DARUNAVIR [Concomitant]
     Active Substance: RITONAVIR
     Indication: HIV INFECTION

REACTIONS (2)
  - Drug interaction [Recovering/Resolving]
  - Cushing^s syndrome [Recovering/Resolving]
